FAERS Safety Report 8023115-8 (Version None)
Quarter: 2012Q1

REPORT INFORMATION
  Report Type: 
  Country: None (occurrence: None)
  Receive Date: 20120104
  Receipt Date: 20111228
  Transmission Date: 20120608
  Serious: Yes (Hospitalization, Other)
  Sender: FDA-Public Use
  Company Number: JP-PFIZER INC-2011298006

PATIENT
  Sex: Female

DRUGS (2)
  1. ETIZOLAM [Suspect]
     Dosage: UNK
  2. ALPRAZOLAM [Suspect]
     Dosage: UNK

REACTIONS (2)
  - OVERDOSE [None]
  - ANXIETY [None]
